FAERS Safety Report 8459630-2 (Version None)
Quarter: 2012Q2

REPORT INFORMATION
  Report Type: 
  Country: None (occurrence: None)
  Receive Date: 20120622
  Receipt Date: 20120614
  Transmission Date: 20120825
  Serious: Yes (Other)
  Sender: FDA-Public Use
  Company Number: FR-GLAXOSMITHKLINE-B0691727A

PATIENT
  Sex: Female
  Weight: 66 kg

DRUGS (8)
  1. PAZOPANIB [Suspect]
     Indication: DERMATOFIBROSARCOMA
     Dosage: 400MG PER DAY
     Route: 048
     Dates: start: 20110119, end: 20110126
  2. POTASSIUM CHLORIDE [Concomitant]
     Indication: HYPOKALAEMIA
  3. INDAPAMIDE [Concomitant]
     Indication: HYPERTENSION
  4. MISSILOR [Concomitant]
     Indication: TOOTH ABSCESS
     Dates: start: 20101123, end: 20101206
  5. CACIT VIT D3 [Concomitant]
  6. ALUMINUM HYDROXIDE AND MAGNESIUM TRISILICATE [Concomitant]
     Indication: GASTROINTESTINAL DISORDER
     Dates: start: 20110105
  7. AMLODIPINE BESYLATE [Suspect]
     Indication: HYPERTENSION
     Dates: start: 20101123
  8. FLANID [Concomitant]
     Indication: TOOTH ABSCESS
     Dates: start: 20101123, end: 20101206

REACTIONS (3)
  - HEPATOCELLULAR INJURY [None]
  - ALANINE AMINOTRANSFERASE INCREASED [None]
  - BLOOD BILIRUBIN INCREASED [None]
